FAERS Safety Report 7918695-4 (Version None)
Quarter: 2011Q4

REPORT INFORMATION
  Report Type: 
  Country: None (occurrence: None)
  Receive Date: 20111109
  Receipt Date: 20111025
  Transmission Date: 20120403
  Serious: Yes (Death)
  Sender: FDA-Public Use
  Company Number: 2011US000094

PATIENT
  Age: 79 Year
  Sex: Male
  Weight: 88 kg

DRUGS (6)
  1. PLAVIX [Concomitant]
  2. ENTEREG [Suspect]
     Indication: POSTOPERATIVE ILEUS
     Dosage: 12 MG; PO
     Route: 048
     Dates: start: 20110617, end: 20110618
  3. METFORMIN HCL [Concomitant]
  4. GLIPIZIDE [Concomitant]
  5. SIMVASTATIN [Concomitant]
  6. MAXZIDE [Concomitant]

REACTIONS (6)
  - VENTRICULAR FIBRILLATION [None]
  - LEFT VENTRICULAR HYPERTROPHY [None]
  - RESPIRATORY FAILURE [None]
  - ELECTROCARDIOGRAM QT PROLONGED [None]
  - METABOLIC ACIDOSIS [None]
  - DIASTOLIC DYSFUNCTION [None]
